FAERS Safety Report 8866075 (Version 1)
Quarter: 2012Q4

REPORT INFORMATION
  Report Type: 
  Country: IT (occurrence: IT)
  Receive Date: 20121025
  Receipt Date: 20121025
  Transmission Date: 20130627
  Serious: Yes (Hospitalization)
  Sender: FDA-Public Use
  Company Number: IT-MYLANLABS-2012S1021338

PATIENT
  Age: 64 Year
  Sex: Female

DRUGS (3)
  1. CITALOPRAM [Suspect]
     Indication: DEPRESSION
     Route: 048
     Dates: start: 20120804, end: 20120804
  2. PANTOPAN [Concomitant]
     Indication: PEPTIC ULCER
     Dosage: 40 MG TABLET
  3. BLOPRESID [Concomitant]
     Indication: HYPERTENSION
     Dosage: 16/12.5 MG TABLET

REACTIONS (5)
  - Abdominal pain upper [Recovering/Resolving]
  - Arrhythmia [Recovering/Resolving]
  - Convulsion [Recovering/Resolving]
  - Drug abuse [Recovering/Resolving]
  - Overdose [Recovering/Resolving]
